FAERS Safety Report 8089317-X (Version None)
Quarter: 2012Q1

REPORT INFORMATION
  Report Type: 
  Country: None (occurrence: None)
  Receive Date: 20120128
  Receipt Date: 20110630
  Transmission Date: 20120608
  Serious: No
  Sender: FDA-Public Use
  Company Number: US-ABBOTT-11P-163-0835532-00

PATIENT
  Age: 68 Year
  Sex: Male

DRUGS (2)
  1. HUMIRA [Suspect]
     Indication: PSORIASIS
     Route: 058
     Dates: start: 20110401
  2. BROMOCRIPTINE MESYLATE [Concomitant]
     Indication: PITUITARY TUMOUR
     Route: 048

REACTIONS (1)
  - INJECTION SITE PAIN [None]
